FAERS Safety Report 6346338-2 (Version None)
Quarter: 2009Q3

REPORT INFORMATION
  Report Type: 
  Country: None (occurrence: None)
  Receive Date: 20090821
  Receipt Date: 20090611
  Transmission Date: 20100115
  Serious: No
  Sender: FDA-Public Use
  Company Number: 8047721

PATIENT
  Age: 27 Year
  Sex: Female
  Weight: 90 kg

DRUGS (5)
  1. CIMZIA [Suspect]
     Dosage: 400 MG SC
     Route: 058
     Dates: start: 20090512
  2. ASACOL [Concomitant]
  3. MERCAPTOPURINE [Concomitant]
  4. TRICOR [Concomitant]
  5. CIPRO /00697201/ [Concomitant]

REACTIONS (4)
  - DIARRHOEA [None]
  - NAUSEA [None]
  - SINUSITIS [None]
  - VOMITING [None]
